FAERS Safety Report 23919570 (Version 2)
Quarter: 2024Q2

REPORT INFORMATION
  Report Type: Spontaneous
  Country: BR (occurrence: None)
  Receive Date: 20240530
  Receipt Date: 20240611
  Transmission Date: 20240716
  Serious: Yes (Hospitalization, Other)
  Sender: FDA-Public Use
  Company Number: BR-ROCHE-3568749

PATIENT
  Age: 22 Year
  Sex: Male

DRUGS (4)
  1. EMICIZUMAB [Suspect]
     Active Substance: EMICIZUMAB
     Indication: Factor VIII deficiency
     Route: 058
     Dates: start: 20220504, end: 20220930
  2. EMICIZUMAB [Suspect]
     Active Substance: EMICIZUMAB
     Route: 058
     Dates: start: 20230807
  3. OLANZAPINE [Concomitant]
     Active Substance: OLANZAPINE
  4. CHLORPROMAZINE [Concomitant]
     Active Substance: CHLORPROMAZINE

REACTIONS (3)
  - Suicide attempt [Recovered/Resolved]
  - Aggression [Unknown]
  - Mental disorder [Unknown]

NARRATIVE: CASE EVENT DATE: 20220801
